FAERS Safety Report 20480122 (Version 1)
Quarter: 2022Q1

REPORT INFORMATION
  Report Type: Spontaneous
  Country: US (occurrence: None)
  Receive Date: 20220215
  Receipt Date: 20220215
  Transmission Date: 20220423
  Serious: Yes (Life-Threatening)
  Sender: FDA-Public Use
  Company Number: None

PATIENT
  Age: 22 Year
  Sex: Female
  Weight: 112.5 kg

DRUGS (1)
  1. CARBIDOPA AND LEVODOPA [Suspect]
     Active Substance: CARBIDOPA\LEVODOPA
     Indication: Dystonia
     Dosage: FREQUENCY : 3 TIMES A DAY;?
     Route: 048
     Dates: start: 20211020, end: 20220215

REACTIONS (10)
  - Mental disorder [None]
  - Irritability [None]
  - Affective disorder [None]
  - Depression [None]
  - Depressed mood [None]
  - Suicidal ideation [None]
  - Fatigue [None]
  - Fatigue [None]
  - Fatigue [None]
  - Therapeutic product effect decreased [None]

NARRATIVE: CASE EVENT DATE: 20220204
